FAERS Safety Report 6619251-0 (Version None)
Quarter: 2010Q1

REPORT INFORMATION
  Report Type: 
  Country: None (occurrence: None)
  Receive Date: 20100308
  Receipt Date: 20100222
  Transmission Date: 20100710
  Serious: Yes (Death)
  Sender: FDA-Public Use
  Company Number: JP-WATSON-2010-02454

PATIENT
  Age: 80 Year
  Sex: Female

DRUGS (2)
  1. PREDNISOLONE [Suspect]
     Indication: ASTHMA
     Dosage: 7.5 MG, DAILY
     Route: 048
  2. DEXAMETHASONE ACETATE [Suspect]
     Indication: ASTHMA
     Dosage: 4 MG, DAILY
     Route: 042

REACTIONS (8)
  - CD4 LYMPHOCYTES DECREASED [None]
  - CYSTITIS HAEMORRHAGIC [None]
  - CYTOMEGALOVIRUS INFECTION [None]
  - DISSEMINATED INTRAVASCULAR COAGULATION [None]
  - HISTIOCYTOSIS HAEMATOPHAGIC [None]
  - MELAENA [None]
  - OLIGURIA [None]
  - THROMBOCYTOPENIA [None]
